FAERS Safety Report 24332219 (Version 3)
Quarter: 2024Q4

REPORT INFORMATION
  Report Type: Spontaneous
  Country: IE (occurrence: IE)
  Receive Date: 20240918
  Receipt Date: 20241123
  Transmission Date: 20250115
  Serious: Yes (Other)
  Sender: CELLTRION
  Company Number: IE-CELLTRION INC.-2024IE022041

PATIENT

DRUGS (2)
  1. YUFLYMA [Suspect]
     Active Substance: ADALIMUMAB-AATY
     Indication: Colitis ulcerative
     Dosage: 40 MG
     Route: 058
     Dates: start: 20240823
  2. YUFLYMA [Suspect]
     Active Substance: ADALIMUMAB-AATY
     Dosage: 40 MG
     Route: 058
     Dates: start: 20241114

REACTIONS (4)
  - Colitis ulcerative [Unknown]
  - Haematochezia [Unknown]
  - Muscle spasms [Unknown]
  - Fatigue [Unknown]

NARRATIVE: CASE EVENT DATE: 20240906
